FAERS Safety Report 7148817-7 (Version None)
Quarter: 2010Q4

REPORT INFORMATION
  Report Type: 
  Country: None (occurrence: None)
  Receive Date: 20101209
  Receipt Date: 20101130
  Transmission Date: 20110411
  Serious: Yes (Hospitalization, Other)
  Sender: FDA-Public Use
  Company Number: PHHY2010GR74395

PATIENT
  Sex: Female

DRUGS (11)
  1. CERTICAN [Suspect]
     Indication: HEART TRANSPLANT
     Dosage: 0.5 MG, BID
     Dates: start: 20071024
  2. CERTICAN [Suspect]
     Indication: IMMUNOSUPPRESSION
  3. SANDIMMUNE [Concomitant]
     Indication: IMMUNOSUPPRESSION
     Dosage: 50MG X2
     Dates: start: 19980710
  4. SANDIMMUNE [Concomitant]
     Dosage: 150MG
     Dates: start: 20101101
  5. SINTROM [Concomitant]
     Indication: TRANSIENT ISCHAEMIC ATTACK
     Dosage: 4 MG
     Dates: start: 20090430
  6. LASIX [Concomitant]
     Indication: RIGHT VENTRICULAR FAILURE
     Dosage: 20 MG
     Dates: start: 19980101
  7. KERIONE TAB [Concomitant]
     Indication: HYPERTENSION
     Dosage: 20 MG, 1/2 X2
     Dates: start: 20100920
  8. ZYLORIC [Concomitant]
     Indication: BLOOD URIC ACID INCREASED
     Dosage: 100 MG
     Dates: start: 20000101
  9. NORVASC [Concomitant]
     Indication: HYPERTENSION
     Dosage: 5MG, 1X1
     Dates: start: 20091111
  10. FRUSEMIDE [Concomitant]
     Dosage: 20 MG, TID
     Route: 042
  11. AMLODIPINE [Concomitant]

REACTIONS (6)
  - COUGH [None]
  - HYPERTENSION [None]
  - OEDEMA PERIPHERAL [None]
  - TRANSIENT ISCHAEMIC ATTACK [None]
  - VEIN DISORDER [None]
  - WEIGHT DECREASED [None]
